FAERS Safety Report 4493038-X (Version None)
Quarter: 2004Q4

REPORT INFORMATION
  Report Type: 
  Country: None (occurrence: None)
  Receive Date: 20041029
  Receipt Date: 20041016
  Transmission Date: 20050328
  Serious: Yes (Other)
  Sender: FDA-Public Use
  Company Number: 2004081373

PATIENT
  Sex: Female

DRUGS (6)
  1. ZOLOFT [Suspect]
     Indication: ILL-DEFINED DISORDER
  2. IBUPROFEN [Concomitant]
  3. VICODIN [Concomitant]
  4. CARISOPRODOL [Concomitant]
  5. VALPROATE SODIUM [Concomitant]
  6. ALL OTHER THERAPEUTIC PRODUCTS  (ALL OTHER THERAPEUTIC PRODUCTS) [Concomitant]

REACTIONS (1)
  - SURGERY [None]
